FAERS Safety Report 16532151 (Version 1)
Quarter: 2019Q3

REPORT INFORMATION
  Report Type: Other
  Country: CA (occurrence: CA)
  Receive Date: 20190704
  Receipt Date: 20190704
  Transmission Date: 20191004
  Serious: Yes (Hospitalization)
  Sender: FDA-Public Use
  Company Number: CA-APOTEX-2019AP017388

PATIENT
  Age: 68 Year
  Sex: Male

DRUGS (5)
  1. DURVALUMAB. [Suspect]
     Active Substance: DURVALUMAB
     Indication: PANCREATIC CARCINOMA
     Dosage: 1500 MG, 1 EVERY 4 WEEKS
     Route: 041
  2. DURVALUMAB. [Suspect]
     Active Substance: DURVALUMAB
     Dosage: 1500 MG, 1 EVERY 4 WEEKS
     Route: 041
  3. ABRAXANE [Suspect]
     Active Substance: PACLITAXEL
     Indication: PANCREATIC CARCINOMA
     Dosage: 160 MG, THRICE IN 28 DAYS
     Route: 041
  4. GEMCITABINE. [Suspect]
     Active Substance: GEMCITABINE
     Indication: PANCREATIC CARCINOMA
     Dosage: 2100 MG, THRICE IN 28 DAYS
     Route: 041
  5. TICILIMUMAB [Suspect]
     Active Substance: TREMELIMUMAB
     Indication: PANCREATIC CARCINOMA
     Dosage: 75 MG, 1 EVERY 4 WEEKS
     Route: 041

REACTIONS (1)
  - Blood bilirubin increased [Not Recovered/Not Resolved]
